FAERS Safety Report 4290317-6 (Version None)
Quarter: 2004Q1

REPORT INFORMATION
  Report Type: 
  Country: None (occurrence: None)
  Receive Date: 20040126
  Receipt Date: 20031023
  Transmission Date: 20041129
  Serious: Yes (Other)
  Sender: FDA-Public Use
  Company Number: USA030126753

PATIENT
  Age: 73 Year
  Sex: Female
  Weight: 55 kg

DRUGS (6)
  1. FORTEO [Suspect]
     Indication: OSTEOPOROSIS
     Dosage: 20 UG/DAY
     Dates: start: 20030121
  2. PROPOXYPHENE NAPSYLATE W/ ACETAMINOPHEN [Suspect]
     Indication: BACK PAIN
  3. PLAVIX [Concomitant]
  4. LOPRESSOR (METORPOLOL TARTRATE) [Concomitant]
  5. PROTONIX [Concomitant]
  6. ASPIRIN [Concomitant]

REACTIONS (11)
  - BACK DISORDER [None]
  - BACK PAIN [None]
  - BURNING SENSATION [None]
  - DIZZINESS [None]
  - HEADACHE [None]
  - INSOMNIA [None]
  - MUSCLE CRAMP [None]
  - NAUSEA [None]
  - NOCTURIA [None]
  - RETCHING [None]
  - RHINORRHOEA [None]
